FAERS Safety Report 22344150 (Version 1)
Quarter: 2023Q2

REPORT INFORMATION
  Report Type: Spontaneous
  Country: BE (occurrence: BE)
  Receive Date: 20230519
  Receipt Date: 20230519
  Transmission Date: 20230722
  Serious: Yes (Other)
  Sender: FDA-Public Use
  Company Number: BE-HALEON-BECH2023020007

PATIENT
  Sex: Female

DRUGS (1)
  1. DICLOFENAC [Suspect]
     Active Substance: DICLOFENAC
     Indication: Pain
     Dosage: 75 MILLIGRAM
     Route: 065

REACTIONS (5)
  - Diabetes mellitus [Unknown]
  - Musculoskeletal discomfort [Unknown]
  - Low density lipoprotein increased [Unknown]
  - Knee deformity [Unknown]
  - Therapeutic product effect decreased [Unknown]
